FAERS Safety Report 8839961 (Version 4)
Quarter: 2017Q3

REPORT INFORMATION
  Report Type: Report from Study
  Country: US (occurrence: US)
  Receive Date: 20121015
  Receipt Date: 20170828
  Transmission Date: 20171128
  Serious: Yes (Death, Hospitalization)
  Sender: FDA-Public Use
  Company Number: US-CELGENEUS-163-21880-11090744

PATIENT
  Age: 68 Year
  Sex: Male
  Weight: 71.73 kg

DRUGS (2)
  1. REVLIMID [Suspect]
     Active Substance: LENALIDOMIDE
     Indication: PLASMA CELL MYELOMA
     Dosage: 25 MILLIGRAM
     Route: 048
     Dates: start: 20100728, end: 20110614
  2. VELCADE [Suspect]
     Active Substance: BORTEZOMIB
     Indication: PLASMA CELL MYELOMA
     Dosage: 1.3
     Route: 041
     Dates: start: 20110707, end: 20110910

REACTIONS (3)
  - Conjunctival haemorrhage [Unknown]
  - Plasma cell myeloma recurrent [Fatal]
  - Conjunctival oedema [Unknown]

NARRATIVE: CASE EVENT DATE: 20110424
